FAERS Safety Report 23194826 (Version 2)
Quarter: 2024Q1

REPORT INFORMATION
  Report Type: Spontaneous
  Country: US (occurrence: US)
  Receive Date: 20231117
  Receipt Date: 20240314
  Transmission Date: 20240410
  Serious: Yes (Disabling)
  Sender: FDA-Public Use
  Company Number: US-SA-SAC20231115000257

PATIENT
  Age: 6 Year
  Sex: Male

DRUGS (1)
  1. DUPIXENT [Suspect]
     Active Substance: DUPILUMAB
     Indication: Dermatitis allergic
     Dosage: 300 MG Q4W
     Route: 058
     Dates: start: 202309, end: 202310

REACTIONS (9)
  - Loss of personal independence in daily activities [Unknown]
  - Initial insomnia [Unknown]
  - Anxiety [Unknown]
  - Mood disorder due to a general medical condition [Unknown]
  - Pain in extremity [Unknown]
  - Eczema [Unknown]
  - Pruritus [Unknown]
  - Hypersensitivity [Recovered/Resolved]
  - Urticaria [Recovered/Resolved]

NARRATIVE: CASE EVENT DATE: 20231001
